FAERS Safety Report 18135671 (Version 1)
Quarter: 2020Q3

REPORT INFORMATION
  Report Type: Spontaneous
  Country: US (occurrence: US)
  Receive Date: 20200811
  Receipt Date: 20200811
  Transmission Date: 20201103
  Serious: No
  Sender: FDA-Public Use
  Company Number: US-ROCHE-2628280

PATIENT
  Age: 64 Year
  Sex: Female
  Weight: 49.94 kg

DRUGS (1)
  1. BONIVA [Suspect]
     Active Substance: IBANDRONATE SODIUM
     Indication: PRODUCT USED FOR UNKNOWN INDICATION
     Dosage: ONGOING: NO
     Route: 048
     Dates: start: 2008, end: 2008

REACTIONS (2)
  - Pain in jaw [Recovered/Resolved]
  - Bone loss [Unknown]

NARRATIVE: CASE EVENT DATE: 2008
